FAERS Safety Report 9506728 (Version 1)
Quarter: 2013Q3

REPORT INFORMATION
  Report Type: Report from Study
  Country: US (occurrence: US)
  Receive Date: 20130908
  Receipt Date: 20130908
  Transmission Date: 20140515
  Serious: Yes (Death)
  Sender: FDA-Public Use
  Company Number: PHHO2007US13986

PATIENT
  Age: 64 Year
  Sex: Female
  Weight: 61.22 kg

DRUGS (6)
  1. CGS 20267 [Suspect]
     Indication: BREAST CANCER METASTATIC
     Dosage: 2.5 MG, QD
     Route: 048
     Dates: start: 20070709
  2. TARCEVA [Suspect]
     Indication: BREAST CANCER METASTATIC
     Dosage: 150 MG, QD
     Route: 048
     Dates: start: 20070709
  3. NEXIUM [Concomitant]
  4. COMPAZINE [Concomitant]
  5. FERROUS SULFATE [Concomitant]
  6. LORTAB [Concomitant]

REACTIONS (3)
  - Pulmonary embolism [Fatal]
  - Sudden death [Fatal]
  - Fatigue [Fatal]
